FAERS Safety Report 20672172 (Version 4)
Quarter: 2022Q2

REPORT INFORMATION
  Report Type: Spontaneous
  Country: AU (occurrence: AU)
  Receive Date: 20220405
  Receipt Date: 20220509
  Transmission Date: 20220720
  Serious: Yes (Other)
  Sender: FDA-Public Use
  Company Number: AU-CIPLA (EU) LIMITED-2022AU02056

PATIENT

DRUGS (2)
  1. ALBUTEROL [Suspect]
     Active Substance: ALBUTEROL
     Indication: Tocolysis
     Dosage: 5 MG OF THE DRUG DILUTED IN 100 ML NORMAL SALINE ADMINISTERED AT A RATE OF 12 ML/H
     Route: 065
  2. NIFEDIPINE [Suspect]
     Active Substance: NIFEDIPINE
     Indication: Tocolysis
     Dosage: 60 MG, UNK
     Route: 048

REACTIONS (5)
  - Electrocardiogram ST segment elevation [Unknown]
  - Angina pectoris [Unknown]
  - Electrocardiogram ST segment depression [Unknown]
  - Exposure during pregnancy [Unknown]
  - Off label use [Unknown]
